FAERS Safety Report 24332384 (Version 1)
Quarter: 2024Q3

REPORT INFORMATION
  Report Type: Report from Study
  Country: ZA (occurrence: None)
  Receive Date: 20240918
  Receipt Date: 20240918
  Transmission Date: 20241017
  Serious: Yes (Hospitalization)
  Sender: ASTRAZENECA
  Company Number: 2024A212049

PATIENT
  Age: 64 Year
  Sex: Female

DRUGS (9)
  1. BUDESONIDE\FORMOTEROL [Suspect]
     Active Substance: BUDESONIDE\FORMOTEROL
     Indication: Asthma
     Dosage: 160.0UG/INHAL UNKNOWN
     Route: 055
  2. BUDESONIDE\FORMOTEROL [Suspect]
     Active Substance: BUDESONIDE\FORMOTEROL
     Indication: Asthma
     Dosage: 4.5UG/INHAL UNKNOWN
     Route: 055
  3. GLYCOPYRROLATE [Concomitant]
     Active Substance: GLYCOPYRROLATE
     Indication: Chronic obstructive pulmonary disease
     Route: 055
  4. THEOPHYLLINE ANHYDROUS [Concomitant]
     Active Substance: THEOPHYLLINE ANHYDROUS
     Indication: Bronchospasm
     Route: 048
  5. BUDESONIDE [Concomitant]
     Active Substance: BUDESONIDE
     Indication: Asthma
     Route: 055
  6. BE-TABS PREDNISONE 5 MG [Concomitant]
     Route: 048
  7. TRUSTAN 40 MG [Concomitant]
     Indication: Ulcer
     Route: 048
  8. ZILFONE 120 DOSE 50 MCG [Concomitant]
     Indication: Hypersensitivity
     Route: 045
  9. ROBAXIN 750 MG [Concomitant]
     Route: 048

REACTIONS (2)
  - Gait disturbance [Unknown]
  - Nasopharyngitis [Unknown]
